FAERS Safety Report 23951829 (Version 1)
Quarter: 2024Q2

REPORT INFORMATION
  Report Type: Spontaneous
  Country: US (occurrence: None)
  Receive Date: 20240604
  Receipt Date: 20240604
  Transmission Date: 20240716
  Serious: Yes (Life-Threatening, Hospitalization)
  Sender: FDA-Public Use
  Company Number: None

PATIENT
  Age: 24 Year
  Sex: Male
  Weight: 90 kg

DRUGS (2)
  1. HERBALS\MUSHROOMS UNSPECIFIED [Suspect]
     Active Substance: HERBALS\MUSHROOMS UNSPECIFIED
     Dosage: OTHER QUANTITY : VARIABLE;?
     Dates: start: 20240601, end: 20240602
  2. DRONABINOL [Concomitant]
     Active Substance: DRONABINOL

REACTIONS (6)
  - Unresponsive to stimuli [None]
  - Seizure [None]
  - Foaming at mouth [None]
  - Hyperhidrosis [None]
  - Bradycardia [None]
  - Myoclonus [None]

NARRATIVE: CASE EVENT DATE: 20240602
